FAERS Safety Report 10200958 (Version 1)
Quarter: 2014Q2

REPORT INFORMATION
  Report Type: Report from Study
  Country: BD (occurrence: BD)
  Receive Date: 20140528
  Receipt Date: 20140528
  Transmission Date: 20141212
  Serious: Yes (Death, Hospitalization)
  Sender: FDA-Public Use
  Company Number: PHHY2014BD060361

PATIENT
  Age: 42 Year
  Sex: Male

DRUGS (1)
  1. EXELON PATCH [Suspect]
     Indication: DEMENTIA
     Dosage: 4.6 MG DAILY (EXELON PTACH 5CM)
     Route: 062
     Dates: start: 20140416

REACTIONS (2)
  - Cerebrovascular accident [Fatal]
  - Loss of consciousness [Unknown]
